FAERS Safety Report 18054802 (Version 1)
Quarter: 2020Q3

REPORT INFORMATION
  Report Type: Spontaneous
  Country: US (occurrence: US)
  Receive Date: 20200722
  Receipt Date: 20200722
  Transmission Date: 20201103
  Serious: No
  Sender: FDA-Public Use
  Company Number: US-GUERBET-US-20200079

PATIENT
  Age: 49 Year
  Sex: Female
  Weight: 83.9 kg

DRUGS (1)
  1. DOTAREM [Suspect]
     Active Substance: GADOTERATE MEGLUMINE
     Indication: MAGNETIC RESONANCE IMAGING BRAIN
     Route: 042
     Dates: start: 20200206, end: 20200206

REACTIONS (3)
  - Chest pain [Recovered/Resolved]
  - Throat clearing [Recovered/Resolved]
  - Rash [Recovered/Resolved]

NARRATIVE: CASE EVENT DATE: 20200206
